FAERS Safety Report 12239806 (Version 1)
Quarter: 2016Q2

REPORT INFORMATION
  Report Type: Spontaneous
  Country: US (occurrence: US)
  Receive Date: 20160405
  Receipt Date: 20160405
  Transmission Date: 20160815
  Serious: No
  Sender: FDA-Public Use
  Company Number: US-ROCHE-1631907

PATIENT
  Sex: Male
  Weight: 81.27 kg

DRUGS (1)
  1. ERIVEDGE [Suspect]
     Active Substance: VISMODEGIB
     Indication: PRODUCT USED FOR UNKNOWN INDICATION
     Route: 048
     Dates: start: 20150617

REACTIONS (3)
  - Fatigue [Unknown]
  - Body temperature increased [Unknown]
  - Viral infection [Recovered/Resolved]
